FAERS Safety Report 7984812-3 (Version None)
Quarter: 2011Q4

REPORT INFORMATION
  Report Type: 
  Country: None (occurrence: None)
  Receive Date: 20111216
  Receipt Date: 20110921
  Transmission Date: 20120403
  Serious: No
  Sender: FDA-Public Use
  Company Number: US-ALLERGAN-1112563US

PATIENT
  Age: 36 Year
  Sex: Female

DRUGS (2)
  1. ROHTO [Concomitant]
     Indication: OCULAR HYPERAEMIA
     Dosage: UNK
  2. LATISSE [Suspect]
     Indication: GROWTH OF EYELASHES
     Dosage: 1 GTT, PRN
     Route: 061
     Dates: start: 20110401, end: 20110907

REACTIONS (2)
  - INAPPROPRIATE SCHEDULE OF DRUG ADMINISTRATION [None]
  - IRIS HYPERPIGMENTATION [None]
